FAERS Safety Report 10072676 (Version 1)
Quarter: 2014Q2

REPORT INFORMATION
  Report Type: Spontaneous
  Country: US (occurrence: US)
  Receive Date: 20140411
  Receipt Date: 20140411
  Transmission Date: 20141212
  Serious: Yes (Other)
  Sender: FDA-Public Use
  Company Number: US-B.I. PHARMACEUTICALS,INC./RIDGEFIELD-2014-BI-15877BP

PATIENT
  Age: 77 Year
  Sex: Female
  Weight: 39 kg

DRUGS (4)
  1. SPIRIVA [Suspect]
     Indication: CHRONIC OBSTRUCTIVE PULMONARY DISEASE
     Dosage: 18 MCG
     Route: 055
     Dates: start: 2012
  2. SPIRIVA [Suspect]
     Route: 048
     Dates: start: 20140405, end: 20140405
  3. SYMBICORT [Concomitant]
     Indication: CHRONIC OBSTRUCTIVE PULMONARY DISEASE
     Dosage: FORMULATION: INHALATION AEROSOL
     Route: 055
  4. TRAMADOL [Concomitant]
     Indication: PAIN
     Route: 048

REACTIONS (9)
  - Gastric cancer [Recovered/Resolved]
  - Intracardiac thrombus [Recovered/Resolved]
  - Hypertension [Not Recovered/Not Resolved]
  - Gastric ulcer [Recovered/Resolved]
  - Abnormal loss of weight [Not Recovered/Not Resolved]
  - Abdominal pain upper [Not Recovered/Not Resolved]
  - Abdominal pain lower [Recovered/Resolved]
  - Diarrhoea [Not Recovered/Not Resolved]
  - Incorrect route of drug administration [Recovered/Resolved]
